FAERS Safety Report 11103747 (Version 2)
Quarter: 2015Q3

REPORT INFORMATION
  Report Type: Spontaneous
  Country: US (occurrence: US)
  Receive Date: 20150511
  Receipt Date: 20150825
  Transmission Date: 20151125
  Serious: Yes (Other)
  Sender: FDA-Public Use
  Company Number: US-PFIZER INC-2015156285

PATIENT
  Age: 44 Year
  Sex: Female
  Weight: 54 kg

DRUGS (6)
  1. XANAX [Suspect]
     Active Substance: ALPRAZOLAM
     Indication: PANIC DISORDER
     Dosage: 2 MG, 3X/DAY
     Dates: start: 2007, end: 20141226
  2. XANAX [Suspect]
     Active Substance: ALPRAZOLAM
     Indication: TENSION
  3. XANAX [Suspect]
     Active Substance: ALPRAZOLAM
     Indication: HEART RATE INCREASED
  4. XANAX [Suspect]
     Active Substance: ALPRAZOLAM
     Indication: ANXIETY
  5. XANAX [Suspect]
     Active Substance: ALPRAZOLAM
     Indication: NERVOUSNESS
  6. XANAX [Suspect]
     Active Substance: ALPRAZOLAM
     Indication: NEGATIVE THOUGHTS

REACTIONS (11)
  - Dependence [Not Recovered/Not Resolved]
  - Condition aggravated [Recovered/Resolved]
  - Insomnia [Recovered/Resolved]
  - Withdrawal syndrome [Recovered/Resolved]
  - Hallucination, visual [Recovered/Resolved]
  - Morbid thoughts [Recovered/Resolved]
  - Feeling abnormal [Recovered/Resolved]
  - Hallucination, auditory [Recovered/Resolved]
  - Tension [Recovered/Resolved]
  - Rash [Recovered/Resolved]
  - Panic attack [Recovered/Resolved]

NARRATIVE: CASE EVENT DATE: 201412
